FAERS Safety Report 8438222 (Version 4)
Quarter: 2012Q4

REPORT INFORMATION
  Report Type: 
  Country: US (occurrence: US)
  Receive Date: 20120302
  Receipt Date: 20120917
  Transmission Date: 20130627
  Serious: Yes (Hospitalization)
  Sender: FDA-Public Use
  Company Number: US-GLAXOSMITHKLINE-A0932357A

PATIENT
  Age: 57 Year
  Sex: Male

DRUGS (1)
  1. AVANDIA [Suspect]
     Indication: DIABETES MELLITUS
     Dosage: 2MG Twice per day
     Route: 048
     Dates: start: 20040422, end: 20070912

REACTIONS (3)
  - Myocardial infarction [Recovering/Resolving]
  - Ischaemic cardiomyopathy [Unknown]
  - Coronary artery disease [Unknown]
